FAERS Safety Report 25594995 (Version 1)
Quarter: 2025Q3

REPORT INFORMATION
  Report Type: Spontaneous
  Country: CN (occurrence: CN)
  Receive Date: 20250723
  Receipt Date: 20250723
  Transmission Date: 20251020
  Serious: Yes (Other)
  Sender: GE HEALTHCARE
  Company Number: None

PATIENT
  Age: 70 Year
  Sex: Female
  Weight: 63 kg

DRUGS (3)
  1. OMNIPAQUE [Suspect]
     Active Substance: IOHEXOL
     Indication: Coronary arterial stent insertion
     Route: 013
     Dates: start: 20250709, end: 20250709
  2. OMNIPAQUE [Suspect]
     Active Substance: IOHEXOL
     Indication: Coronary angioplasty
  3. OMNIPAQUE [Suspect]
     Active Substance: IOHEXOL
     Indication: Angiocardiogram

REACTIONS (7)
  - Gaze palsy [Recovering/Resolving]
  - Loss of consciousness [Recovered/Resolved]
  - Seizure [Recovering/Resolving]
  - Confusional state [Recovering/Resolving]
  - Hyperhidrosis [Recovering/Resolving]
  - Vomiting [Recovering/Resolving]
  - Rash pruritic [Recovering/Resolving]

NARRATIVE: CASE EVENT DATE: 20250711
